FAERS Safety Report 4826464-7 (Version None)
Quarter: 2005Q4

REPORT INFORMATION
  Report Type: 
  Country: None (occurrence: None)
  Receive Date: 20051111
  Receipt Date: 20051101
  Transmission Date: 20060501
  Serious: Yes (Other)
  Sender: FDA-Public Use
  Company Number: PHNU2005DE03595

PATIENT
  Sex: Female

DRUGS (2)
  1. FEMARA [Suspect]
     Indication: METASTASES TO BONE
     Dosage: 2.5 MG, QD
     Route: 048
     Dates: start: 20040528, end: 20050901
  2. PAMIDRONATE DISODIUM [Concomitant]
     Dosage: UNK, UNK

REACTIONS (4)
  - BLOOD BILIRUBIN INCREASED [None]
  - BLOOD LACTATE DEHYDROGENASE INCREASED [None]
  - HAEMOLYTIC ANAEMIA [None]
  - TUMOUR MARKER INCREASED [None]
